FAERS Safety Report 5040082-X (Version None)
Quarter: 2006Q2

REPORT INFORMATION
  Report Type: 
  Country: None (occurrence: None)
  Receive Date: 20060630
  Receipt Date: 20060621
  Transmission Date: 20061013
  Serious: Yes (Hospitalization)
  Sender: FDA-Public Use
  Company Number: US-BRISTOL-MYERS SQUIBB COMPANY-13419650

PATIENT
  Age: 47 Year
  Sex: Female
  Weight: 113 kg

DRUGS (10)
  1. COUMADIN [Suspect]
     Indication: DEEP VEIN THROMBOSIS
     Dosage: TAKEN IN VARYING DOSAGES, 15 MG DAILY IN JUN-2006
     Dates: start: 19940101
  2. COUMADIN [Suspect]
     Indication: PULMONARY EMBOLISM
     Dosage: TAKEN IN VARYING DOSAGES, 15 MG DAILY IN JUN-2006
     Dates: start: 19940101
  3. LEVAQUIN [Suspect]
     Route: 042
  4. SYNTHROID [Concomitant]
  5. PROTONIX [Concomitant]
  6. DURAGESIC-100 [Concomitant]
     Dosage: DURATION OF THERAPY:  5-6 YEARS
  7. HYDROCODONE [Concomitant]
  8. LORTAB [Concomitant]
  9. ADVAIR DISKUS 100/50 [Concomitant]
     Dosage: DURATION OF THERAPY:  6-7 YEARS
  10. ALBUTEROL [Concomitant]

REACTIONS (5)
  - ALOPECIA [None]
  - INTERNATIONAL NORMALISED RATIO DECREASED [None]
  - INTERNATIONAL NORMALISED RATIO INCREASED [None]
  - PNEUMONIA VIRAL [None]
  - RASH [None]
